FAERS Safety Report 9234867 (Version 2)
Quarter: 2013Q2

REPORT INFORMATION
  Report Type: Spontaneous
  Country: JP (occurrence: JP)
  Receive Date: 20130416
  Receipt Date: 20130510
  Transmission Date: 20140414
  Serious: Yes (Other)
  Sender: FDA-Public Use
  Company Number: JP-PFIZER INC-2013119541

PATIENT
  Age: 63 Year
  Sex: Male

DRUGS (4)
  1. LYRICA [Suspect]
     Dosage: UNK
     Route: 048
  2. DEPAS [Concomitant]
     Route: 048
  3. LENDORMIN [Concomitant]
     Route: 048
  4. MENESIT [Concomitant]
     Dosage: 200 MG/DAY
     Route: 048

REACTIONS (2)
  - Fall [Unknown]
  - Dysstasia [Unknown]
